FAERS Safety Report 13889796 (Version 1)
Quarter: 2017Q3

REPORT INFORMATION
  Report Type: Spontaneous
  Country: US (occurrence: None)
  Receive Date: 20170821
  Receipt Date: 20170821
  Transmission Date: 20171127
  Serious: Yes (Hospitalization)
  Sender: FDA-Public Use
  Company Number: None

PATIENT
  Age: 48 Year
  Sex: Female
  Weight: 63.5 kg

DRUGS (2)
  1. DIOVAN [Suspect]
     Active Substance: VALSARTAN
  2. VALSARTAN 320MG [Suspect]
     Active Substance: VALSARTAN
     Dates: start: 201707

REACTIONS (2)
  - Influenza like illness [None]
  - Hyperhidrosis [None]

NARRATIVE: CASE EVENT DATE: 2007
